FAERS Safety Report 19637134 (Version 2)
Quarter: 2021Q3

REPORT INFORMATION
  Report Type: Report from Study
  Country: IT (occurrence: IT)
  Receive Date: 20210730
  Receipt Date: 20210812
  Transmission Date: 20211014
  Serious: Yes (Other)
  Sender: FDA-Public Use
  Company Number: IT-GLAXOSMITHKLINE-IT2021EME161888

PATIENT
  Age: 60 Year
  Sex: Female

DRUGS (10)
  1. NIRAPARIB [Suspect]
     Active Substance: NIRAPARIB
     Indication: OVARIAN CANCER
     Dosage: UNK
     Route: 048
     Dates: start: 20200820, end: 20210215
  2. CARBOPLATIN. [Concomitant]
     Active Substance: CARBOPLATIN
     Dosage: 4 AUC
     Dates: start: 20210617, end: 20210617
  3. DIBASE [Concomitant]
     Active Substance: CHOLECALCIFEROL
     Dosage: 25000 IU, Z?EVERY 15 DAYS
  4. TRABECTEDIN [Concomitant]
     Active Substance: TRABECTEDIN
     Dosage: UNK
     Dates: start: 20210318, end: 20210318
  5. XANAX [Concomitant]
     Active Substance: ALPRAZOLAM
     Dosage: 0.5 MG, QD
  6. CAELYX [Concomitant]
     Active Substance: DOXORUBICIN HYDROCHLORIDE
     Dosage: UNK
     Dates: start: 20210318, end: 20210318
  7. CARBOPLATIN. [Concomitant]
     Active Substance: CARBOPLATIN
     Dosage: 4 AUC
  8. GEMCITABINE. [Concomitant]
     Active Substance: GEMCITABINE
     Dosage: 1000 MG
     Dates: start: 20210617, end: 20210617
  9. VASELINE OIL [Concomitant]
     Dosage: 1 DF, QD
  10. BISOPROLOL [Concomitant]
     Active Substance: BISOPROLOL
     Dosage: 1.25 MG, QD

REACTIONS (1)
  - Malignant neoplasm progression [Unknown]

NARRATIVE: CASE EVENT DATE: 20210224
